FAERS Safety Report 5313095-8 (Version None)
Quarter: 2007Q1

REPORT INFORMATION
  Report Type: 
  Country: None (occurrence: None)
  Receive Date: 20070201
  Receipt Date: 20061120
  Transmission Date: 20070707
  Serious: No
  Sender: FDA-Public Use
  Company Number: VNL_0302_2006

PATIENT
  Age: 72 Year
  Sex: Male
  Weight: 78.0187 kg

DRUGS (1)
  1. APOKYN [Suspect]
     Indication: PARKINSON'S DISEASE
     Dosage: 0.2 ML QDAY SC
     Route: 058
     Dates: start: 20061117, end: 20061117

REACTIONS (1)
  - LOSS OF CONSCIOUSNESS [None]
